FAERS Safety Report 7099899-2 (Version None)
Quarter: 2010Q4

REPORT INFORMATION
  Report Type: 
  Country: None (occurrence: None)
  Receive Date: 20101105
  Receipt Date: 20101102
  Transmission Date: 20110411
  Serious: Yes (Other)
  Sender: FDA-Public Use
  Company Number: DSA_44044_2010

PATIENT
  Sex: Male
  Weight: 92.5338 kg

DRUGS (7)
  1. XENAZINE [Suspect]
     Indication: HUNTINGTON'S DISEASE
     Dosage: (12.5 MG QD ORAL)
     Route: 048
     Dates: start: 20081223, end: 20100419
  2. EFFEXOR [Concomitant]
  3. AMBIEN CR [Concomitant]
  4. BENADRYL [Concomitant]
  5. LEXAPRO [Concomitant]
  6. ZOCOR [Concomitant]
  7. COLESTIPOL HYDROCHLORIDE [Concomitant]

REACTIONS (1)
  - HEPATIC ENZYME INCREASED [None]
